FAERS Safety Report 7114658-X (Version None)
Quarter: 2010Q4

REPORT INFORMATION
  Report Type: 
  Country: None (occurrence: None)
  Receive Date: 20101122
  Receipt Date: 20101110
  Transmission Date: 20110411
  Serious: Yes (Hospitalization)
  Sender: FDA-Public Use
  Company Number: CZ-BIOGENIDEC-2010BI037087

PATIENT
  Age: 40 Year
  Sex: Female

DRUGS (9)
  1. TYSABRI [Suspect]
     Indication: RELAPSING-REMITTING MULTIPLE SCLEROSIS
     Route: 042
     Dates: start: 20090820, end: 20100823
  2. PREGABALIN [Concomitant]
     Route: 048
     Dates: start: 20090803
  3. AMITRIPTYLINE HCL [Concomitant]
     Route: 048
     Dates: start: 20081031
  4. MAGNESIUM [Concomitant]
     Route: 048
     Dates: start: 20080525
  5. CLONAZEPAM [Concomitant]
     Route: 048
     Dates: start: 20091016
  6. METOPROLOL TARTRATE [Concomitant]
     Route: 048
  7. LEVOTHYROXINE SODIUM [Concomitant]
     Route: 048
  8. CETIRIZINE HCL [Concomitant]
     Route: 048
     Dates: start: 20081031
  9. OMEPRIZOL [Concomitant]
     Route: 048
     Dates: start: 20080707

REACTIONS (3)
  - BRAIN CONTUSION [None]
  - SUBARACHNOID HAEMORRHAGE [None]
  - SUBDURAL HAEMORRHAGE [None]
